FAERS Safety Report 5608395-8 (Version None)
Quarter: 2008Q1

REPORT INFORMATION
  Report Type: 
  Country: None (occurrence: None)
  Receive Date: 20080125
  Receipt Date: 20080111
  Transmission Date: 20080703
  Serious: Yes (Death)
  Sender: FDA-Public Use
  Company Number: 2008P1000013

PATIENT
  Age: 53 Year
  Sex: Male

DRUGS (3)
  1. BUSULFAN (BUSULFAN) [Suspect]
     Indication: STEM CELL TRANSPLANT
     Dosage: 7.5 MG;X1;IV
     Route: 042
     Dates: start: 20070621, end: 20070622
  2. VALPROATE SODIUM [Concomitant]
  3. FLUDARABINE PHOSPHATE [Concomitant]

REACTIONS (7)
  - ANOREXIA [None]
  - MALAISE [None]
  - NAUSEA [None]
  - OFF LABEL USE [None]
  - PNEUMONIA [None]
  - STAPHYLOCOCCAL SEPSIS [None]
  - STOMATITIS [None]
